FAERS Safety Report 13804785 (Version 1)
Quarter: 2017Q3

REPORT INFORMATION
  Report Type: Spontaneous
  Country: US (occurrence: US)
  Receive Date: 20170728
  Receipt Date: 20170728
  Transmission Date: 20171127
  Serious: Yes (Other)
  Sender: FDA-Public Use
  Company Number: US-ABBVIE-17P-163-1912855-00

PATIENT

DRUGS (1)
  1. LEVOTHYROXINE. [Suspect]
     Active Substance: LEVOTHYROXINE
     Indication: PRODUCT USED FOR UNKNOWN INDICATION
     Route: 048

REACTIONS (16)
  - Respiratory disorder [Unknown]
  - Asthenia [Unknown]
  - Myalgia [Unknown]
  - Bone pain [Unknown]
  - Weight increased [Unknown]
  - Alopecia [Unknown]
  - Cardiac arrest [Unknown]
  - Rash [Unknown]
  - Hypertension [Unknown]
  - Memory impairment [Unknown]
  - Fatigue [Unknown]
  - Constipation [Unknown]
  - Neck pain [Unknown]
  - Bradyphrenia [Unknown]
  - Dry skin [Unknown]
  - Heart rate decreased [Unknown]
